FAERS Safety Report 5597634-8 (Version None)
Quarter: 2008Q1

REPORT INFORMATION
  Report Type: 
  Country: None (occurrence: None)
  Receive Date: 20080121
  Receipt Date: 20080109
  Transmission Date: 20080703
  Serious: Yes (Other)
  Sender: FDA-Public Use
  Company Number: US-ELI_LILLY_AND_COMPANY-US200801001668

PATIENT
  Age: 35 Year
  Sex: Female

DRUGS (3)
  1. CYMBALTA [Suspect]
     Indication: PAIN
     Dosage: 60 MG, UNK
     Route: 048
     Dates: start: 20070501
  2. INSULIN [Concomitant]
  3. ACE INHIBITOR NOS [Concomitant]

REACTIONS (1)
  - GASTRIC BYPASS [None]
